FAERS Safety Report 16499591 (Version 1)
Quarter: 2019Q3

REPORT INFORMATION
  Report Type: Spontaneous
  Country: US (occurrence: US)
  Receive Date: 20190701
  Receipt Date: 20190701
  Transmission Date: 20191004
  Serious: Yes (Other)
  Sender: FDA-Public Use
  Company Number: US-LUPIN PHARMACEUTICALS INC.-2019-03981

PATIENT
  Age: 57 Year
  Sex: Female

DRUGS (2)
  1. ALPRAZOLAM. [Suspect]
     Active Substance: ALPRAZOLAM
     Indication: PRODUCT USED FOR UNKNOWN INDICATION
     Dosage: 0.5 MILLIGRAM, QD (AT NIGHT)
     Route: 065
  2. LISINOPRIL TABLETS USP, 10MG [Suspect]
     Active Substance: LISINOPRIL
     Indication: PRODUCT USED FOR UNKNOWN INDICATION
     Dosage: UNK
     Route: 065

REACTIONS (8)
  - Visual impairment [Unknown]
  - Oral disorder [Unknown]
  - Sensitive skin [Unknown]
  - Pharyngitis streptococcal [Unknown]
  - Hypersensitivity [Unknown]
  - Swelling face [Unknown]
  - Erythema [Unknown]
  - Pneumonia [Unknown]
